FAERS Safety Report 10149683 (Version 1)
Quarter: 2014Q2

REPORT INFORMATION
  Report Type: Spontaneous
  Country: JP (occurrence: JP)
  Receive Date: 20140502
  Receipt Date: 20140502
  Transmission Date: 20141212
  Serious: Yes (Hospitalization)
  Sender: FDA-Public Use
  Company Number: JP-JNJFOC-20140419036

PATIENT
  Age: 77 Year
  Sex: Male

DRUGS (1)
  1. XARELTO [Suspect]
     Indication: CEREBROVASCULAR ACCIDENT PROPHYLAXIS
     Route: 048

REACTIONS (2)
  - Embolic stroke [Not Recovered/Not Resolved]
  - Drug ineffective [Unknown]
